FAERS Safety Report 20136817 (Version 1)
Quarter: 2021Q4

REPORT INFORMATION
  Report Type: Spontaneous
  Country: US (occurrence: US)
  Receive Date: 20211201
  Receipt Date: 20211201
  Transmission Date: 20220303
  Serious: No
  Sender: FDA-Public Use
  Company Number: US-MYLANLABS-2021M1075055

PATIENT
  Sex: Female
  Weight: 63 kg

DRUGS (2)
  1. ESTRADIOL TRANSDERMAL SYSTEM [Suspect]
     Active Substance: ESTRADIOL
     Indication: Hormone replacement therapy
     Dosage: 0.075 MILLIGRAM, QD
     Route: 062
  2. CALCIUM/VITAMIN D                  /01204201/ [Concomitant]
     Dosage: UNK

REACTIONS (6)
  - Application site erythema [Not Recovered/Not Resolved]
  - Application site irritation [Unknown]
  - Application site pruritus [Recovered/Resolved]
  - Product packaging quantity issue [Not Recovered/Not Resolved]
  - Product adhesion issue [Not Recovered/Not Resolved]
  - Wrong technique in product usage process [Unknown]
